FAERS Safety Report 20571584 (Version 2)
Quarter: 2022Q1

REPORT INFORMATION
  Report Type: Report from Study
  Country: CN (occurrence: None)
  Receive Date: 20220309
  Receipt Date: 20220315
  Transmission Date: 20220423
  Serious: Yes (Hospitalization)
  Sender: FDA-Public Use
  Company Number: 2021A683909

PATIENT
  Age: 24187 Day
  Sex: Male

DRUGS (15)
  1. DURVALUMAB [Suspect]
     Active Substance: DURVALUMAB
     Indication: Small cell lung cancer extensive stage
     Route: 042
     Dates: start: 20210525
  2. DURVALUMAB [Suspect]
     Active Substance: DURVALUMAB
     Indication: Small cell lung cancer extensive stage
     Route: 042
     Dates: start: 20210616
  3. DURVALUMAB [Suspect]
     Active Substance: DURVALUMAB
     Indication: Small cell lung cancer extensive stage
     Route: 042
     Dates: start: 20210707
  4. ETOPOSIDE [Suspect]
     Active Substance: ETOPOSIDE
     Indication: Small cell lung cancer extensive stage
     Dosage: 100 MG/M2 Q3W FOR THE FIRST 4 TO 6 CYCLES
     Route: 042
     Dates: start: 20210525
  5. ETOPOSIDE [Suspect]
     Active Substance: ETOPOSIDE
     Indication: Small cell lung cancer extensive stage
     Dosage: 100 MG/M2 Q3W FOR THE FIRST 4 TO 6 CYCLES
     Route: 042
     Dates: start: 20210526
  6. ETOPOSIDE [Suspect]
     Active Substance: ETOPOSIDE
     Indication: Small cell lung cancer extensive stage
     Dosage: 100 MG/M2 Q3W FOR THE FIRST 4 TO 6 CYCLES
     Route: 042
     Dates: start: 20210527
  7. ETOPOSIDE [Suspect]
     Active Substance: ETOPOSIDE
     Indication: Small cell lung cancer extensive stage
     Dosage: 100 MG/M2 Q3W FOR THE FIRST 4 TO 6 CYCLES
     Route: 042
     Dates: start: 20210616
  8. ETOPOSIDE [Suspect]
     Active Substance: ETOPOSIDE
     Indication: Small cell lung cancer extensive stage
     Dosage: 100 MG/M2 Q3W FOR THE FIRST 4 TO 6 CYCLES
     Route: 042
     Dates: start: 20210617
  9. ETOPOSIDE [Suspect]
     Active Substance: ETOPOSIDE
     Indication: Small cell lung cancer extensive stage
     Dosage: 100 MG/M2 Q3W FOR THE FIRST 4 TO 6 CYCLES
     Route: 042
     Dates: start: 20210618
  10. ETOPOSIDE [Suspect]
     Active Substance: ETOPOSIDE
     Indication: Small cell lung cancer extensive stage
     Dosage: 100 MG/M2 Q3W FOR THE FIRST 4 TO 6 CYCLES
     Route: 042
     Dates: start: 20210707
  11. ETOPOSIDE [Suspect]
     Active Substance: ETOPOSIDE
     Indication: Small cell lung cancer extensive stage
     Dosage: 100 MG/M2 Q3W FOR THE FIRST 4 TO 6 CYCLES
     Route: 042
     Dates: start: 20210708
  12. ETOPOSIDE [Suspect]
     Active Substance: ETOPOSIDE
     Indication: Small cell lung cancer extensive stage
     Dosage: 100 MG/M2 Q3W FOR THE FIRST 4 TO 6 CYCLES
     Route: 042
     Dates: start: 20210709
  13. CARBOPLATIN [Suspect]
     Active Substance: CARBOPLATIN
     Indication: Small cell lung cancer extensive stage
     Dosage: 5 AUC Q3W FOR THE FIRST 4 TO 6 CYCLES
     Route: 042
     Dates: start: 20210525
  14. CARBOPLATIN [Suspect]
     Active Substance: CARBOPLATIN
     Indication: Small cell lung cancer extensive stage
     Dosage: 5 AUC Q3W FOR THE FIRST 4 TO 6 CYCLES
     Route: 042
     Dates: start: 20210616
  15. CARBOPLATIN [Suspect]
     Active Substance: CARBOPLATIN
     Indication: Small cell lung cancer extensive stage
     Dosage: 5 AUC Q3W FOR THE FIRST 4 TO 6 CYCLES
     Route: 042
     Dates: start: 20210707

REACTIONS (4)
  - White blood cell count decreased [Not Recovered/Not Resolved]
  - Neutrophil count decreased [Not Recovered/Not Resolved]
  - Anaemia [Not Recovered/Not Resolved]
  - Pneumonia [Not Recovered/Not Resolved]

NARRATIVE: CASE EVENT DATE: 20210621
